FAERS Safety Report 9106669 (Version 1)
Quarter: 2013Q1

REPORT INFORMATION
  Report Type: Spontaneous
  Country: CH (occurrence: CH)
  Receive Date: 20130221
  Receipt Date: 20130221
  Transmission Date: 20140127
  Serious: Yes (Hospitalization)
  Sender: FDA-Public Use
  Company Number: PHHY2013CH015021

PATIENT
  Age: 25 Year
  Sex: Male

DRUGS (4)
  1. VOLTAREN [Suspect]
     Indication: NECK PAIN
     Dosage: 75 MG, BID
     Route: 048
     Dates: start: 20130110, end: 20130116
  2. NOVALGINE [Suspect]
     Indication: NECK PAIN
     Dosage: UNK UKN, UNK
     Route: 048
     Dates: start: 201204
  3. NOVALGINE [Suspect]
     Dosage: 500 MG, TID
     Route: 048
     Dates: start: 20130109, end: 20130116
  4. TRAMAL [Concomitant]
     Indication: NECK PAIN
     Dosage: 20 GTT, QID
     Route: 048
     Dates: start: 20130110, end: 20130116

REACTIONS (4)
  - Tonsillitis [Recovered/Resolved]
  - Agranulocytosis [Recovered/Resolved]
  - Pyrexia [Recovered/Resolved]
  - Oropharyngeal pain [Recovered/Resolved]
